FAERS Safety Report 4684215-3 (Version None)
Quarter: 2005Q2

REPORT INFORMATION
  Report Type: 
  Country: None (occurrence: None)
  Receive Date: 20050531
  Receipt Date: 20050418
  Transmission Date: 20051028
  Serious: Yes (Hospitalization)
  Sender: FDA-Public Use
  Company Number: US_0411108458

PATIENT
  Age: 58 Year
  Sex: Female
  Weight: 67 kg

DRUGS (8)
  1. ZYPREXA [Suspect]
     Dosage: 5 MG
     Dates: start: 19980401, end: 20010201
  2. OLAZNAPINE/FLUOXETINE CAPSULE [Concomitant]
  3. CLOZAPINE [Concomitant]
  4. QUETIAPINE [Concomitant]
  5. RISPERIDONE [Concomitant]
  6. BUPROPION [Concomitant]
  7. INSULIN [Concomitant]
  8. ATENOLOL [Concomitant]

REACTIONS (3)
  - DIABETES MELLITUS [None]
  - INCREASED APPETITE [None]
  - WEIGHT INCREASED [None]
